FAERS Safety Report 7127724 (Version 6)
Quarter: 2012Q4

REPORT INFORMATION
  Report Type: 
  Country: US (occurrence: US)
  Receive Date: 20090924
  Receipt Date: 20121107
  Transmission Date: 20130627
  Serious: Yes (Other)
  Sender: FDA-Public Use
  Company Number: US-ASTRAZENECA-2008UW27999

PATIENT
  Age: 42 Year
  Sex: Male
  Weight: 81.6 kg

DRUGS (12)
  1. SEROQUEL XR [Suspect]
     Indication: SLEEP DISORDER
     Route: 048
  2. SEROQUEL XR [Suspect]
     Indication: MENTAL DISORDER
     Route: 048
  3. SEROQUEL XR [Suspect]
     Indication: SLEEP DISORDER
     Route: 048
  4. SEROQUEL XR [Suspect]
     Indication: MENTAL DISORDER
     Route: 048
  5. SEROQUEL XR [Suspect]
     Indication: SLEEP DISORDER
     Dosage: TAKES 200-250 MG PER NIGHT
     Route: 048
  6. SEROQUEL XR [Suspect]
     Indication: MENTAL DISORDER
     Dosage: TAKES 200-250 MG PER NIGHT
     Route: 048
  7. SEROQUEL XR [Suspect]
     Indication: SLEEP DISORDER
     Route: 048
  8. SEROQUEL XR [Suspect]
     Indication: MENTAL DISORDER
     Route: 048
  9. SEROQUEL XR [Suspect]
     Indication: SLEEP DISORDER
     Route: 048
  10. SEROQUEL XR [Suspect]
     Indication: MENTAL DISORDER
     Route: 048
  11. METHADONE [Concomitant]
  12. CLONAZEPAM [Concomitant]

REACTIONS (20)
  - Loss of consciousness [Unknown]
  - Drug withdrawal syndrome [Unknown]
  - Petit mal epilepsy [Unknown]
  - Convulsion [Unknown]
  - Insomnia [Unknown]
  - Headache [Unknown]
  - Hangover [Unknown]
  - Migraine [Unknown]
  - Procedural pain [Unknown]
  - Delirium [Unknown]
  - Amnesia [Unknown]
  - Feeling abnormal [Unknown]
  - Drug effect prolonged [Unknown]
  - Headache [Unknown]
  - Malaise [Unknown]
  - Nervousness [Unknown]
  - Vomiting [Unknown]
  - Intentional drug misuse [Unknown]
  - Drug dose omission [Unknown]
  - Off label use [Unknown]
